FAERS Safety Report 8989922 (Version 5)
Quarter: 2015Q1

REPORT INFORMATION
  Report Type: Report from Study
  Country: JP (occurrence: JP)
  Receive Date: 20121228
  Receipt Date: 20150316
  Transmission Date: 20150721
  Serious: Yes (Hospitalization, Other)
  Sender: FDA-Public Use
  Company Number: JP-GLAXOSMITHKLINE-B0854963A

PATIENT
  Age: 62 Year
  Sex: Male

DRUGS (20)
  1. WARFARIN [Suspect]
     Active Substance: WARFARIN
     Route: 048
     Dates: start: 20121022, end: 20121026
  2. FOSAMAC 35MG [Concomitant]
     Route: 048
     Dates: start: 20121022
  3. NOVORAPID [Concomitant]
     Active Substance: INSULIN ASPART
     Route: 058
     Dates: start: 20121030, end: 20121102
  4. OMEPRAL [Concomitant]
     Active Substance: OMEPRAZOLE
     Route: 048
     Dates: start: 20121022, end: 20121028
  5. FLORID [Suspect]
     Active Substance: MICONAZOLE
     Dosage: 1 DF, QID
     Route: 048
     Dates: start: 20121022, end: 20121022
  6. ENTOMOL [Concomitant]
     Route: 048
     Dates: start: 20121022, end: 20121022
  7. SOLU-MEDROL [Concomitant]
     Active Substance: METHYLPREDNISOLONE SODIUM SUCCINATE
     Route: 042
     Dates: start: 20120726, end: 20120730
  8. SOLU-MEDROL [Concomitant]
     Active Substance: METHYLPREDNISOLONE SODIUM SUCCINATE
     Route: 042
     Dates: start: 20120805, end: 20120809
  9. BENAMBAX [Concomitant]
     Active Substance: PENTAMIDINE
     Indication: ANTIFUNGAL PROPHYLAXIS
     Route: 042
     Dates: start: 20121009, end: 20121009
  10. GASTER [Concomitant]
     Active Substance: FAMOTIDINE
     Route: 048
     Dates: start: 20121028
  11. TIGASON [Concomitant]
     Active Substance: ETRETINATE
     Route: 048
     Dates: start: 20121022
  12. BREDININ [Concomitant]
     Active Substance: MIZORIBINE
     Route: 048
     Dates: start: 20121031
  13. CALONAL [Concomitant]
     Active Substance: ACETAMINOPHEN
     Route: 048
     Dates: start: 20121022
  14. POSTERISAN [Concomitant]
     Active Substance: LIDOCAINE
     Route: 050
     Dates: start: 20121027, end: 20121029
  15. MEDROL [Concomitant]
     Active Substance: METHYLPREDNISOLONE
     Route: 048
     Dates: start: 20120810, end: 20120815
  16. MEDROL [Concomitant]
     Active Substance: METHYLPREDNISOLONE
     Route: 048
     Dates: start: 20120816, end: 20120822
  17. ATOVAQUONE. [Suspect]
     Active Substance: ATOVAQUONE
     Indication: PNEUMOCYSTIS JIROVECII PNEUMONIA
     Route: 048
     Dates: start: 20121022, end: 20121111
  18. SOLU-MEDROL [Concomitant]
     Active Substance: METHYLPREDNISOLONE SODIUM SUCCINATE
     Route: 042
     Dates: start: 20120731, end: 20120804
  19. FUNGIZONE [Concomitant]
     Active Substance: AMPHOTERICIN B
     Route: 048
     Dates: start: 20121022
  20. MEDROL [Concomitant]
     Active Substance: METHYLPREDNISOLONE
     Route: 048
     Dates: start: 20120823, end: 20120830

REACTIONS (2)
  - Melaena [Recovering/Resolving]
  - Liver function test abnormal [Recovered/Resolved]

NARRATIVE: CASE EVENT DATE: 20121027
